FAERS Safety Report 17591687 (Version 1)
Quarter: 2020Q1

REPORT INFORMATION
  Report Type: Report from Study
  Country: US (occurrence: US)
  Receive Date: 20200327
  Receipt Date: 20200327
  Transmission Date: 20200409
  Serious: Yes (Life-Threatening)
  Sender: FDA-Public Use
  Company Number: US-JNJFOC-NSADSS2001034203

PATIENT
  Age: 30 Year
  Sex: Male

DRUGS (34)
  1. AMOXICILLIN. [Concomitant]
     Active Substance: AMOXICILLIN
     Indication: BRONCHITIS
     Route: 048
     Dates: start: 20011026, end: 20011101
  2. REMERON [Concomitant]
     Active Substance: MIRTAZAPINE
     Route: 048
     Dates: end: 20011031
  3. ALLEGRA-D [Concomitant]
     Active Substance: FEXOFENADINE\PSEUDOEPHEDRINE
     Indication: RHINITIS ALLERGIC
     Route: 048
  4. SENOKOT [Concomitant]
     Active Substance: SENNOSIDES
     Indication: CONSTIPATION
     Route: 048
  5. REGLAN [Concomitant]
     Active Substance: METOCLOPRAMIDE HYDROCHLORIDE
     Indication: IMPAIRED GASTRIC EMPTYING
     Route: 042
     Dates: end: 20010827
  6. AMOXICILLIN. [Concomitant]
     Active Substance: AMOXICILLIN
     Route: 048
     Dates: end: 20010818
  7. REMERON [Concomitant]
     Active Substance: MIRTAZAPINE
     Indication: DEPRESSION
     Route: 048
     Dates: start: 20011031
  8. FORTAZ [Concomitant]
     Active Substance: CEFTAZIDIME SODIUM
     Indication: SYSTEMIC BACTERIAL INFECTION
     Route: 042
     Dates: start: 20010927, end: 20011004
  9. METHADONE [Concomitant]
     Active Substance: METHADONE HYDROCHLORIDE
     Indication: ABDOMINAL PAIN
     Route: 048
     Dates: start: 20011101, end: 20011104
  10. MORPHINE [Concomitant]
     Active Substance: MORPHINE
     Indication: ABDOMINAL PAIN
     Route: 003
     Dates: end: 20011102
  11. BENADRYL [Concomitant]
     Active Substance: DIPHENHYDRAMINE HYDROCHLORIDE
     Indication: PRURITUS
     Route: 042
  12. TESTOSTERONE. [Concomitant]
     Active Substance: TESTOSTERONE
     Indication: HYPOGONADISM
     Route: 030
  13. REGULAR INSULIN [Concomitant]
     Active Substance: INSULIN NOS
     Indication: DIABETES MELLITUS
     Route: 058
  14. LEVOTHYROXINE. [Concomitant]
     Active Substance: LEVOTHYROXINE
     Indication: HYPOTHYROIDISM
     Route: 042
     Dates: start: 20010824
  15. PROMETHAZINE [Concomitant]
     Active Substance: PROMETHAZINE HYDROCHLORIDE
     Indication: VOMITING
     Route: 042
     Dates: end: 20011018
  16. TOTAL PARENTRAL NUTRITION [Concomitant]
     Indication: IMPAIRED GASTRIC EMPTYING
     Route: 065
     Dates: end: 20011030
  17. TYLENOL [Concomitant]
     Active Substance: ACETAMINOPHEN
     Indication: HEADACHE
     Route: 048
  18. CARAFATE [Concomitant]
     Active Substance: SUCRALFATE
     Indication: OESOPHAGITIS
     Route: 048
  19. MIACALCIN [Concomitant]
     Active Substance: CALCITONIN SALMON
     Indication: OSTEOPOROSIS
     Route: 045
  20. PEPCID [Concomitant]
     Active Substance: FAMOTIDINE
     Indication: GASTRITIS
  21. FORTAZ [Concomitant]
     Active Substance: CEFTAZIDIME SODIUM
     Route: 041
     Dates: end: 20010819
  22. COLACE [Concomitant]
     Active Substance: DOCUSATE SODIUM
     Indication: CONSTIPATION
     Route: 065
  23. AMPICILLIN [Concomitant]
     Active Substance: AMPICILLIN
     Indication: BRONCHITIS
     Route: 042
     Dates: start: 20011025, end: 20011026
  24. PEPCID [Concomitant]
     Active Substance: FAMOTIDINE
     Indication: GASTROOESOPHAGEAL REFLUX DISEASE
     Route: 042
     Dates: start: 20011104
  25. LEVOTHYROXINE. [Concomitant]
     Active Substance: LEVOTHYROXINE
     Route: 041
     Dates: end: 20010823
  26. CISAPRIDE [Suspect]
     Active Substance: CISAPRIDE
     Indication: IMPAIRED GASTRIC EMPTYING
     Route: 048
     Dates: start: 20011021
  27. MORPHINE [Concomitant]
     Active Substance: MORPHINE
     Indication: ABDOMINAL PAIN
     Route: 058
     Dates: start: 20011102
  28. IRON DEXTRAN [Concomitant]
     Active Substance: IRON DEXTRAN
     Indication: IRON DEFICIENCY
     Route: 030
     Dates: start: 20010915
  29. BACTROBAN [Concomitant]
     Active Substance: MUPIROCIN\MUPIROCIN CALCIUM
     Indication: STAPHYLOCOCCAL INFECTION
     Route: 048
     Dates: start: 20010926
  30. PREVACID [Concomitant]
     Active Substance: LANSOPRAZOLE
     Indication: GASTROOESOPHAGEAL REFLUX DISEASE
     Route: 065
  31. NYSTATIN. [Concomitant]
     Active Substance: NYSTATIN
     Indication: CANDIDA INFECTION
     Route: 048
  32. VITAMIN K [Concomitant]
     Active Substance: PHYTONADIONE
     Indication: PARENTERAL NUTRITION
     Route: 030
  33. CARAFATE [Concomitant]
     Active Substance: SUCRALFATE
     Indication: GASTRITIS
  34. VANCOMYCIN [Concomitant]
     Active Substance: VANCOMYCIN
     Indication: BLOOD CULTURE
     Route: 042
     Dates: start: 20011105

REACTIONS (1)
  - Diabetic ketoacidosis [Recovered/Resolved]

NARRATIVE: CASE EVENT DATE: 20011104
